FAERS Safety Report 6064481-2 (Version None)
Quarter: 2009Q1

REPORT INFORMATION
  Report Type: 
  Country: None (occurrence: None)
  Receive Date: 20090203
  Receipt Date: 20090203
  Transmission Date: 20090719
  Serious: Yes (Hospitalization)
  Sender: FDA-Public Use
  Company Number: None

PATIENT
  Sex: Male
  Weight: 39 kg

DRUGS (1)
  1. IFOSFAMIDE [Suspect]
     Indication: EWING'S SARCOMA
     Dosage: 2200 MG ONCE IV DRIP
     Route: 041

REACTIONS (2)
  - CONVULSION [None]
  - NEUROTOXICITY [None]
